FAERS Safety Report 4888826-1 (Version None)
Quarter: 2006Q1

REPORT INFORMATION
  Report Type: 
  Country: None (occurrence: None)
  Receive Date: 20060123
  Receipt Date: 20041220
  Transmission Date: 20060701
  Serious: Yes (Disabling)
  Sender: FDA-Public Use
  Company Number: US-MERCK-0412USA02412

PATIENT
  Sex: Female

DRUGS (1)
  1. VIOXX [Suspect]
     Indication: ARTHRALGIA
     Route: 048
     Dates: start: 20010101, end: 20020301

REACTIONS (5)
  - ANHEDONIA [None]
  - ANXIETY [None]
  - EMOTIONAL DISORDER [None]
  - MYOCARDIAL INFARCTION [None]
  - UNEVALUABLE EVENT [None]
